FAERS Safety Report 6037492-0 (Version None)
Quarter: 2009Q1

REPORT INFORMATION
  Report Type: 
  Country: None (occurrence: None)
  Receive Date: 20090114
  Receipt Date: 20090108
  Transmission Date: 20090719
  Serious: Yes (Other)
  Sender: FDA-Public Use
  Company Number: US-ROXANE LABORATORIES, INC.-2009-RO-00054RO

PATIENT

DRUGS (2)
  1. AZATHIOPRINE [Suspect]
  2. LEFLUNOMIDE [Suspect]

REACTIONS (4)
  - HEMIPARESIS [None]
  - PARTIAL SEIZURES [None]
  - PROGRESSIVE MULTIFOCAL LEUKOENCEPHALOPATHY [None]
  - SPEECH DISORDER [None]
